FAERS Safety Report 18760402 (Version 1)
Quarter: 2021Q1

REPORT INFORMATION
  Report Type: Report from Study
  Country: CN (occurrence: CN)
  Receive Date: 20210119
  Receipt Date: 20210119
  Transmission Date: 20210419
  Serious: Yes (Hospitalization)
  Sender: FDA-Public Use
  Company Number: CN-PFIZER INC-2021012069

PATIENT
  Age: 66 Year
  Sex: Male
  Weight: 75 kg

DRUGS (80)
  1. CISPLATIN. [Suspect]
     Active Substance: CISPLATIN
     Dosage: 130 MG, CYCLIC (2 HOURS 6 MINS)
     Route: 042
     Dates: start: 20180627, end: 20180627
  2. DEXAMETHASONE SODIUM PHOSPHATE. [Concomitant]
     Active Substance: DEXAMETHASONE SODIUM PHOSPHATE
     Dosage: 10 MG, DAILY
     Route: 042
     Dates: start: 20180628, end: 20180628
  3. FUROSEMIDE. [Concomitant]
     Active Substance: FUROSEMIDE
     Dosage: 20 MG, DAILY
     Route: 042
     Dates: start: 20180404, end: 20180406
  4. IBUPROFEN. [Concomitant]
     Active Substance: IBUPROFEN
     Indication: PYREXIA
     Dosage: 3 G, DAILY
     Route: 048
     Dates: start: 20180227, end: 20180227
  5. GLUCOSE/POTASSIUM CHLORIDE/SODIUM CHLORIDE [Concomitant]
     Active Substance: DEXTROSE\POTASSIUM CHLORIDE\SODIUM CHLORIDE
     Dosage: 500 ML, DAILY
     Route: 042
     Dates: start: 20180308, end: 20180310
  6. TROPISETRON HYDROCHLORIDE [Concomitant]
     Active Substance: TROPISETRON HYDROCHLORIDE
     Dosage: 5 MG, DAILY
     Route: 042
     Dates: start: 20180606, end: 20180606
  7. GEMCITABINE HYDROCHLORIDE. [Suspect]
     Active Substance: GEMCITABINE HYDROCHLORIDE
     Dosage: 1800 MG, CYCLIC (36 MINS)
     Route: 042
     Dates: start: 20180507, end: 20180507
  8. MANNITOL. [Concomitant]
     Active Substance: MANNITOL
     Dosage: 250 ML, DAILY
     Route: 042
     Dates: start: 20180427, end: 20180427
  9. FUROSEMIDE. [Concomitant]
     Active Substance: FUROSEMIDE
     Dosage: 20 MG, DAILY
     Route: 042
     Dates: start: 20180523, end: 20180523
  10. GLUCOSE/POTASSIUM CHLORIDE/SODIUM CHLORIDE [Concomitant]
     Active Substance: DEXTROSE\POTASSIUM CHLORIDE\SODIUM CHLORIDE
     Indication: SUPPLEMENTATION THERAPY
     Dosage: 500 ML, DAILY
     Route: 042
     Dates: start: 20180207, end: 20180207
  11. TROPISETRON HYDROCHLORIDE [Concomitant]
     Active Substance: TROPISETRON HYDROCHLORIDE
     Dosage: 5 MG, DAILY
     Route: 042
     Dates: start: 20180309, end: 20180310
  12. TROPISETRON HYDROCHLORIDE [Concomitant]
     Active Substance: TROPISETRON HYDROCHLORIDE
     Dosage: 5 MG, DAILY
     Route: 042
     Dates: start: 20180427, end: 20180427
  13. CISPLATIN. [Suspect]
     Active Substance: CISPLATIN
     Dosage: 130 MG, CYCLIC (2 HOURS 16 MINS)
     Route: 042
     Dates: start: 20180530, end: 20180530
  14. GEMCITABINE HYDROCHLORIDE. [Suspect]
     Active Substance: GEMCITABINE HYDROCHLORIDE
     Indication: NON-SMALL CELL LUNG CANCER
     Dosage: 2300 MG, CYCLIC (1 HOUR 23 MINS)
     Route: 042
     Dates: start: 20180212, end: 20180212
  15. GEMCITABINE HYDROCHLORIDE. [Suspect]
     Active Substance: GEMCITABINE HYDROCHLORIDE
     Dosage: 2300 MG, CYCLIC (ON DAY 8) (35 MINS)
     Route: 042
     Dates: start: 20180222, end: 20180222
  16. GEMCITABINE HYDROCHLORIDE. [Suspect]
     Active Substance: GEMCITABINE HYDROCHLORIDE
     Dosage: 1800 MG, CYCLIC (42 MINS)
     Route: 042
     Dates: start: 20180412, end: 20180412
  17. MOXIFLOXACIN HYDROCHLORIDE. [Concomitant]
     Active Substance: MOXIFLOXACIN HYDROCHLORIDE
     Indication: PNEUMONIA
     Dosage: 4 G, DAILY
     Route: 042
     Dates: start: 20180523, end: 20180529
  18. TROPISETRON HYDROCHLORIDE [Concomitant]
     Active Substance: TROPISETRON HYDROCHLORIDE
     Dosage: 5 MG, DAILY
     Route: 042
     Dates: start: 20180530, end: 20180530
  19. TROPISETRON HYDROCHLORIDE [Concomitant]
     Active Substance: TROPISETRON HYDROCHLORIDE
     Dosage: 5 MG, DAILY
     Route: 042
     Dates: start: 20180704, end: 20180704
  20. GEMCITABINE HYDROCHLORIDE. [Suspect]
     Active Substance: GEMCITABINE HYDROCHLORIDE
     Dosage: 2300 MG, CYCLIC (30 MINS)
     Route: 042
     Dates: start: 20180309, end: 20180309
  21. GEMCITABINE HYDROCHLORIDE. [Suspect]
     Active Substance: GEMCITABINE HYDROCHLORIDE
     Dosage: 1800 MG, CYCLIC (30 MINS)
     Route: 042
     Dates: start: 20180704, end: 20180704
  22. MANNITOL. [Concomitant]
     Active Substance: MANNITOL
     Indication: PREMEDICATION
     Dosage: 250 ML, DAILY
     Route: 042
     Dates: start: 20180212, end: 20180212
  23. APREPITANT. [Concomitant]
     Active Substance: APREPITANT
     Dosage: 125 MG, DAILY
     Route: 048
     Dates: start: 20180405, end: 20180405
  24. BERBERINE [Concomitant]
     Active Substance: BERBERINE
     Indication: DIARRHOEA
     Dosage: 3 DF, DAILY
     Route: 048
     Dates: start: 20180216, end: 20180216
  25. DEXAMETHASONE SODIUM PHOSPHATE. [Concomitant]
     Active Substance: DEXAMETHASONE SODIUM PHOSPHATE
     Indication: PREMEDICATION
     Dosage: 10 MG, DAILY
     Route: 042
     Dates: start: 20180212, end: 20180213
  26. DEXAMETHASONE SODIUM PHOSPHATE. [Concomitant]
     Active Substance: DEXAMETHASONE SODIUM PHOSPHATE
     Dosage: 10 MG, DAILY
     Route: 042
     Dates: start: 20180405, end: 20180405
  27. DEXAMETHASONE SODIUM PHOSPHATE. [Concomitant]
     Active Substance: DEXAMETHASONE SODIUM PHOSPHATE
     Dosage: 10 MG, DAILY
     Route: 042
     Dates: start: 20180530, end: 20180530
  28. FUROSEMIDE. [Concomitant]
     Active Substance: FUROSEMIDE
     Indication: PREMEDICATION
     Dosage: 20 MG, DAILY
     Route: 042
     Dates: start: 20180212, end: 20180212
  29. FUROSEMIDE. [Concomitant]
     Active Substance: FUROSEMIDE
     Dosage: 20 MG, DAILY
     Route: 042
     Dates: start: 20180427, end: 20180428
  30. FUROSEMIDE. [Concomitant]
     Active Substance: FUROSEMIDE
     Dosage: 20 MG, DAILY
     Route: 042
     Dates: start: 20180529, end: 20180531
  31. POTASSIUM ASPARTATE [Concomitant]
     Active Substance: POTASSIUM ASPARTATE
     Dosage: 3.4 G, DAILY
     Route: 042
     Dates: start: 20180428, end: 20180428
  32. GLUCOSE/POTASSIUM CHLORIDE/SODIUM CHLORIDE [Concomitant]
     Active Substance: DEXTROSE\POTASSIUM CHLORIDE\SODIUM CHLORIDE
     Dosage: 500 ML, DAILY
     Route: 042
     Dates: start: 20180426, end: 20180426
  33. GLUCOSE/POTASSIUM CHLORIDE/SODIUM CHLORIDE [Concomitant]
     Active Substance: DEXTROSE\POTASSIUM CHLORIDE\SODIUM CHLORIDE
     Dosage: 500 ML, DAILY
     Route: 042
     Dates: start: 20180428, end: 20180428
  34. TROPISETRON HYDROCHLORIDE [Concomitant]
     Active Substance: TROPISETRON HYDROCHLORIDE
     Dosage: 5 MG, DAILY
     Route: 042
     Dates: start: 20180627, end: 20180627
  35. CISPLATIN. [Suspect]
     Active Substance: CISPLATIN
     Indication: NON-SMALL CELL LUNG CANCER
     Dosage: 140 MG, CYCLIC (3 HOURS 10 MINS)
     Route: 042
     Dates: start: 20180212, end: 20180212
  36. GEMCITABINE HYDROCHLORIDE. [Suspect]
     Active Substance: GEMCITABINE HYDROCHLORIDE
     Dosage: 1800 MG, CYCLIC (38 MINS)
     Route: 042
     Dates: start: 20180427, end: 20180427
  37. GEMCITABINE HYDROCHLORIDE. [Suspect]
     Active Substance: GEMCITABINE HYDROCHLORIDE
     Dosage: 2300 MG, CYCLIC (30 MINS)
     Route: 042
     Dates: start: 20180319, end: 20180319
  38. MANNITOL. [Concomitant]
     Active Substance: MANNITOL
     Indication: FLUID REPLACEMENT
     Dosage: 250 ML, DAILY
     Route: 042
     Dates: start: 20180309, end: 20180309
  39. MANNITOL. [Concomitant]
     Active Substance: MANNITOL
     Dosage: 250 ML, DAILY
     Route: 042
     Dates: start: 20180628, end: 20180628
  40. APREPITANT. [Concomitant]
     Active Substance: APREPITANT
     Dosage: 80 MG, DAILY
     Route: 048
     Dates: start: 20180213, end: 20180214
  41. DEXAMETHASONE SODIUM PHOSPHATE. [Concomitant]
     Active Substance: DEXAMETHASONE SODIUM PHOSPHATE
     Dosage: 10 MG, DAILY
     Route: 042
     Dates: start: 20180309, end: 20180310
  42. IBUPROFEN. [Concomitant]
     Active Substance: IBUPROFEN
     Indication: PROPHYLAXIS
     Dosage: 3 G, DAILY
     Route: 048
     Dates: start: 20180206, end: 20180207
  43. CODEINE [Concomitant]
     Active Substance: CODEINE
     Indication: COUGH
     Dosage: 30 MG, 1X/DAY HS (AT BEDTIME)
     Route: 048
     Dates: start: 20180206, end: 20180211
  44. POTASSIUM ASPARTATE [Concomitant]
     Active Substance: POTASSIUM ASPARTATE
     Indication: PREMEDICATION
     Dosage: 3.4 G, DAILY
     Route: 042
     Dates: start: 20180212, end: 20180213
  45. GLUCOSE/POTASSIUM CHLORIDE/SODIUM CHLORIDE [Concomitant]
     Active Substance: DEXTROSE\POTASSIUM CHLORIDE\SODIUM CHLORIDE
     Dosage: 500 ML, DAILY
     Route: 042
     Dates: start: 20180211, end: 20180211
  46. GLUCOSE/POTASSIUM CHLORIDE/SODIUM CHLORIDE [Concomitant]
     Active Substance: DEXTROSE\POTASSIUM CHLORIDE\SODIUM CHLORIDE
     Dosage: 500 ML, DAILY
     Route: 042
     Dates: start: 20180212, end: 20180212
  47. CISPLATIN. [Suspect]
     Active Substance: CISPLATIN
     Dosage: 130 MG, CYCLIC (1 HOUR 59 MINS)
     Route: 042
     Dates: start: 20180427, end: 20180427
  48. MANNITOL. [Concomitant]
     Active Substance: MANNITOL
     Dosage: 250 ML, DAILY
     Route: 042
     Dates: start: 20180405, end: 20180405
  49. APREPITANT. [Concomitant]
     Active Substance: APREPITANT
     Indication: PREMEDICATION
     Dosage: 125 MG, DAILY
     Route: 048
     Dates: start: 20180212, end: 20180212
  50. APREPITANT. [Concomitant]
     Active Substance: APREPITANT
     Dosage: 80 MG, DAILY
     Route: 048
     Dates: start: 20180628, end: 20180629
  51. DEXAMETHASONE SODIUM PHOSPHATE. [Concomitant]
     Active Substance: DEXAMETHASONE SODIUM PHOSPHATE
     Dosage: 10 MG, DAILY
     Route: 042
     Dates: start: 20180427, end: 20180427
  52. FUROSEMIDE. [Concomitant]
     Active Substance: FUROSEMIDE
     Dosage: 20 MG, DAILY
     Route: 042
     Dates: start: 20180626, end: 20180628
  53. IBUPROFEN. [Concomitant]
     Active Substance: IBUPROFEN
     Dosage: 3 G, DAILY
     Route: 048
     Dates: start: 20180520, end: 20180522
  54. IBUPROFEN. [Concomitant]
     Active Substance: IBUPROFEN
     Dosage: 3 G, DAILY
     Route: 048
     Dates: start: 20180628
  55. POTASSIUM ASPARTATE [Concomitant]
     Active Substance: POTASSIUM ASPARTATE
     Dosage: 3.4 G, DAILY
     Route: 042
     Dates: start: 20180531, end: 20180531
  56. TROPISETRON HYDROCHLORIDE [Concomitant]
     Active Substance: TROPISETRON HYDROCHLORIDE
     Dosage: 5 MG, DAILY
     Route: 042
     Dates: start: 20180222, end: 20180222
  57. TROPISETRON HYDROCHLORIDE [Concomitant]
     Active Substance: TROPISETRON HYDROCHLORIDE
     Dosage: 5 MG, DAILY
     Route: 042
     Dates: start: 20180405, end: 20180405
  58. CISPLATIN. [Suspect]
     Active Substance: CISPLATIN
     Dosage: 130 MG, CYCLIC (3 HOURS 29 MINS)
     Route: 042
     Dates: start: 20180309, end: 20180309
  59. GEMCITABINE HYDROCHLORIDE. [Suspect]
     Active Substance: GEMCITABINE HYDROCHLORIDE
     Dosage: 1800 MG, CYCLIC (30 MINS)
     Route: 042
     Dates: start: 20180405, end: 20180405
  60. GEMCITABINE HYDROCHLORIDE. [Suspect]
     Active Substance: GEMCITABINE HYDROCHLORIDE
     Dosage: 1800 MG, CYCLIC (2 HOURS 37MINS)
     Route: 042
     Dates: start: 20180606, end: 20180606
  61. MANNITOL. [Concomitant]
     Active Substance: MANNITOL
     Dosage: 250 ML, DAILY
     Route: 042
     Dates: start: 20180530, end: 20180530
  62. APREPITANT. [Concomitant]
     Active Substance: APREPITANT
     Dosage: 80 MG, DAILY
     Route: 048
     Dates: start: 20180310, end: 20180311
  63. APREPITANT. [Concomitant]
     Active Substance: APREPITANT
     Dosage: 80 MG, DAILY
     Route: 048
     Dates: start: 20180406, end: 20180407
  64. FUROSEMIDE. [Concomitant]
     Active Substance: FUROSEMIDE
     Indication: DIURETIC THERAPY
     Dosage: 20 MG, DAILY
     Route: 042
     Dates: start: 20180308, end: 20180310
  65. POTASSIUM ASPARTATE [Concomitant]
     Active Substance: POTASSIUM ASPARTATE
     Indication: SUPPLEMENTATION THERAPY
     Dosage: 3.4 G, DAILY
     Route: 042
     Dates: start: 20180308, end: 20180310
  66. POTASSIUM ASPARTATE [Concomitant]
     Active Substance: POTASSIUM ASPARTATE
     Dosage: 3.4 G, DAILY
     Route: 042
     Dates: start: 20180404, end: 20180406
  67. GLUCOSE/POTASSIUM CHLORIDE/SODIUM CHLORIDE [Concomitant]
     Active Substance: DEXTROSE\POTASSIUM CHLORIDE\SODIUM CHLORIDE
     Dosage: 500 ML, DAILY
     Route: 042
     Dates: start: 20180213, end: 20180213
  68. GLUCOSE/POTASSIUM CHLORIDE/SODIUM CHLORIDE [Concomitant]
     Active Substance: DEXTROSE\POTASSIUM CHLORIDE\SODIUM CHLORIDE
     Dosage: 500 ML, DAILY
     Route: 042
     Dates: start: 20180227, end: 20180301
  69. TROPISETRON HYDROCHLORIDE [Concomitant]
     Active Substance: TROPISETRON HYDROCHLORIDE
     Indication: PREMEDICATION
     Dosage: 5 MG, DAILY
     Route: 042
     Dates: start: 20180212, end: 20180213
  70. TROPISETRON HYDROCHLORIDE [Concomitant]
     Active Substance: TROPISETRON HYDROCHLORIDE
     Dosage: 5 MG, DAILY
     Route: 042
     Dates: start: 20180319, end: 20180319
  71. TROPISETRON HYDROCHLORIDE [Concomitant]
     Active Substance: TROPISETRON HYDROCHLORIDE
     Dosage: 5 MG, DAILY
     Route: 042
     Dates: start: 20180507, end: 20180507
  72. CISPLATIN. [Suspect]
     Active Substance: CISPLATIN
     Dosage: 130 MG, CYCLIC (2 HOURS 37 MINS)
     Route: 042
     Dates: start: 20180405, end: 20180405
  73. GEMCITABINE HYDROCHLORIDE. [Suspect]
     Active Substance: GEMCITABINE HYDROCHLORIDE
     Dosage: 1800 MG, CYCLIC  (30 MINS)
     Route: 042
     Dates: start: 20180627, end: 20180627
  74. APREPITANT. [Concomitant]
     Active Substance: APREPITANT
     Dosage: 125 MG, DAILY
     Route: 048
     Dates: start: 20180309, end: 20180309
  75. APREPITANT. [Concomitant]
     Active Substance: APREPITANT
     Dosage: 125 MG, DAILY
     Route: 048
     Dates: start: 20180427, end: 20180427
  76. MOXIFLOXACIN HYDROCHLORIDE. [Concomitant]
     Active Substance: MOXIFLOXACIN HYDROCHLORIDE
     Indication: PYREXIA
     Dosage: 4 G, DAILY
     Route: 042
     Dates: start: 20180208, end: 20180211
  77. MOXIFLOXACIN HYDROCHLORIDE. [Concomitant]
     Active Substance: MOXIFLOXACIN HYDROCHLORIDE
     Dosage: 4 G, DAILY
     Route: 042
     Dates: start: 20180523, end: 20180529
  78. GLUCOSE/POTASSIUM CHLORIDE/SODIUM CHLORIDE [Concomitant]
     Active Substance: DEXTROSE\POTASSIUM CHLORIDE\SODIUM CHLORIDE
     Dosage: 500 ML, DAILY
     Route: 042
     Dates: start: 20180404, end: 20180406
  79. GLUCOSE/POTASSIUM CHLORIDE/SODIUM CHLORIDE [Concomitant]
     Active Substance: DEXTROSE\POTASSIUM CHLORIDE\SODIUM CHLORIDE
     Dosage: 500 ML, DAILY
     Route: 042
     Dates: start: 20180427, end: 20180427
  80. TROPISETRON HYDROCHLORIDE [Concomitant]
     Active Substance: TROPISETRON HYDROCHLORIDE
     Dosage: 5 MG, DAILY
     Route: 042
     Dates: start: 20180412, end: 20180412

REACTIONS (1)
  - Pneumonia [Recovered/Resolved]

NARRATIVE: CASE EVENT DATE: 20180227
